FAERS Safety Report 8487942-5 (Version None)
Quarter: 2012Q3

REPORT INFORMATION
  Report Type: 
  Country: None (occurrence: None)
  Receive Date: 20120705
  Receipt Date: 20120625
  Transmission Date: 20120928
  Serious: Yes (Other)
  Sender: FDA-Public Use
  Company Number: PHHY2012BR056347

PATIENT
  Sex: Female
  Weight: 120 kg

DRUGS (1)
  1. DICLOFENAC SODIUM [Suspect]
     Indication: LIGAMENT RUPTURE
     Dosage: 1 DF, BID (ONE CAPSULE IN THE MORNING AND ONE CAPSULE AT NIGHT)
     Route: 048
     Dates: start: 20120621, end: 20120624

REACTIONS (7)
  - DIARRHOEA [None]
  - HYPERSENSITIVITY [None]
  - BLISTER [None]
  - ERYTHEMA [None]
  - RESTLESSNESS [None]
  - PRURITUS GENERALISED [None]
  - INSOMNIA [None]
